FAERS Safety Report 4627821-4 (Version None)
Quarter: 2005Q2

REPORT INFORMATION
  Report Type: 
  Country: None (occurrence: None)
  Receive Date: 20050406
  Receipt Date: 20050329
  Transmission Date: 20051028
  Serious: Yes (Hospitalization)
  Sender: FDA-Public Use
  Company Number: 200510846EU

PATIENT
  Age: 64 Year
  Sex: Male

DRUGS (4)
  1. SEGURIL [Suspect]
     Indication: RENAL FAILURE CHRONIC
     Route: 048
     Dates: start: 20031101, end: 20040526
  2. ALDACTONE [Suspect]
     Indication: RENAL FAILURE CHRONIC
     Route: 048
     Dates: start: 20040420, end: 20040526
  3. NORVASC [Concomitant]
     Indication: CARDIAC DISORDER
     Route: 048
  4. SINTROM [Concomitant]

REACTIONS (1)
  - HYPERKALAEMIA [None]
